FAERS Safety Report 8255629-X (Version None)
Quarter: 2012Q1

REPORT INFORMATION
  Report Type: 
  Country: None (occurrence: None)
  Receive Date: 20120329
  Receipt Date: 20110603
  Transmission Date: 20120608
  Serious: Yes (Death)
  Sender: FDA-Public Use
  Company Number: DE-REGULIS-0035

PATIENT
  Age: 48 Year
  Sex: Female

DRUGS (1)
  1. FOSCARNET [Suspect]
     Indication: CYTOMEGALOVIRUS INFECTION
     Dosage: 60, MG/KG MILLIGRAM(S)/KILOGRAM, 3, 1, DAYS

REACTIONS (3)
  - NEPHROPATHY TOXIC [None]
  - ENCEPHALITIS CYTOMEGALOVIRUS [None]
  - RETINITIS [None]
